FAERS Safety Report 5101548-7 (Version None)
Quarter: 2006Q3

REPORT INFORMATION
  Report Type: 
  Country: None (occurrence: None)
  Receive Date: 20060731
  Receipt Date: 20060616
  Transmission Date: 20061208
  Serious: No
  Sender: FDA-Public Use
  Company Number: 2006PV015870

PATIENT
  Age: 71 Year
  Sex: Female

DRUGS (1)
  1. BYETTA [Suspect]
     Indication: DIABETES MELLITUS
     Dosage: 10 MCG;BID;SC
     Route: 058
     Dates: start: 20060607

REACTIONS (5)
  - BLOOD GLUCOSE INCREASED [None]
  - CONSTIPATION [None]
  - DRUG INEFFECTIVE [None]
  - FEELING HOT [None]
  - PARAESTHESIA [None]
